FAERS Safety Report 9710796 (Version 1)
Quarter: 2013Q4

REPORT INFORMATION
  Report Type: Spontaneous
  Country: US (occurrence: None)
  Receive Date: 20131125
  Receipt Date: 20131125
  Transmission Date: 20140711
  Serious: Yes (Other)
  Sender: FDA-Public Use
  Company Number: None

PATIENT
  Age: 68 Year
  Sex: Male
  Weight: 96.16 kg

DRUGS (2)
  1. GABAPENTIN [Suspect]
     Indication: HEADACHE
     Dosage: 1 CAPSULE FOUR TIMES DAILY TAKEN BY MOUTH
     Route: 048
     Dates: start: 20131117, end: 20131120
  2. GABAPENTIN [Suspect]
     Indication: HERPES ZOSTER
     Dosage: 1 CAPSULE FOUR TIMES DAILY TAKEN BY MOUTH
     Route: 048
     Dates: start: 20131117, end: 20131120

REACTIONS (2)
  - Nausea [None]
  - Vomiting [None]
